FAERS Safety Report 11537777 (Version 1)
Quarter: 2015Q3

REPORT INFORMATION
  Report Type: Other
  Country: GB (occurrence: GB)
  Receive Date: 20150922
  Receipt Date: 20150922
  Transmission Date: 20151125
  Serious: Yes (Other)
  Sender: FDA-Public Use
  Company Number: GB-MYLANLABS-2015M1030768

PATIENT

DRUGS (22)
  1. PARACETAMOL [Concomitant]
     Active Substance: ACETAMINOPHEN
  2. TRANEXAMIC ACID. [Concomitant]
     Active Substance: TRANEXAMIC ACID
  3. VITAMIN K [Concomitant]
     Active Substance: PHYTONADIONE
  4. RIFAMPICIN [Suspect]
     Active Substance: RIFAMPIN
     Indication: CYSTIC FIBROSIS
     Dosage: 300 MG, BID
     Route: 048
  5. DORNASE ALFA [Concomitant]
     Active Substance: DORNASE ALFA
  6. FOLIC ACID. [Concomitant]
     Active Substance: FOLIC ACID
  7. OMEPRAZOLE. [Concomitant]
     Active Substance: OMEPRAZOLE
  8. CREON [Concomitant]
     Active Substance: PANCRELIPASE AMYLASE\PANCRELIPASE LIPASE\PANCRELIPASE PROTEASE
  9. CHLORAMPHENICOL [Concomitant]
     Active Substance: CHLORAMPHENICOL
     Indication: CYSTIC FIBROSIS
     Route: 048
  10. NOVORAPID [Concomitant]
     Active Substance: INSULIN ASPART
  11. PREDNISOLONE. [Concomitant]
     Active Substance: PREDNISOLONE
  12. AZITHROMYCIN [Concomitant]
     Active Substance: AZITHROMYCIN ANHYDROUS
  13. COLECALCIFEROL [Concomitant]
     Active Substance: CHOLECALCIFEROL
  14. FERROUS SULFATE [Concomitant]
     Active Substance: FERROUS SULFATE\FERROUS SULFATE, DRIED
  15. MIRTAZAPINE. [Concomitant]
     Active Substance: MIRTAZAPINE
  16. SALBUTAMOL [Concomitant]
     Active Substance: ALBUTEROL
  17. SENNA [Concomitant]
     Active Substance: SENNA LEAF\SENNOSIDES\SENNOSIDES A AND B
  18. DOCUSATE [Concomitant]
     Active Substance: DOCUSATE
  19. MXL [Concomitant]
     Active Substance: MORPHINE SULFATE
  20. ORAMORPH [Concomitant]
     Active Substance: MORPHINE SULFATE
  21. SODIUM CHLORIDE. [Concomitant]
     Active Substance: SODIUM CHLORIDE
  22. SYMBICORT [Concomitant]
     Active Substance: BUDESONIDE\FORMOTEROL FUMARATE DIHYDRATE

REACTIONS (2)
  - Unresponsive to stimuli [Recovered/Resolved]
  - Hypoglycaemia [Recovered/Resolved]
